FAERS Safety Report 7002193-9 (Version None)
Quarter: 2010Q3

REPORT INFORMATION
  Report Type: 
  Country: None (occurrence: None)
  Receive Date: 20100920
  Receipt Date: 20100908
  Transmission Date: 20110219
  Serious: Yes (Other)
  Sender: FDA-Public Use
  Company Number: GB-PFIZER INC-2010087513

PATIENT
  Age: 73 Year
  Sex: Male

DRUGS (8)
  1. LYRICA [Suspect]
     Indication: NEUROPATHY PERIPHERAL
     Dosage: 75 MG, 2X/DAY
     Dates: start: 20090901
  2. LYRICA [Suspect]
     Dosage: 300 MG, 2X/DAY
  3. RAMIPRIL [Concomitant]
     Indication: HYPERTENSION
     Dosage: 10 MG, 1X/DAY
  4. DOXAZOSIN [Concomitant]
     Indication: HYPERTENSION
     Dosage: 1 MG, 1X/DAY
  5. VALPROATE SODIUM [Concomitant]
     Indication: SUBDURAL HAEMORRHAGE
     Dosage: 500 MG, 2X/DAY
  6. INDORAMIN [Concomitant]
     Indication: PROPHYLAXIS
     Dosage: UNK
  7. ACETYLSALICYLIC ACID ENTERIC COATED [Concomitant]
     Dosage: 75 MG, 1X/DAY
  8. OMEPRAZOLE [Concomitant]
     Indication: PROPHYLAXIS
     Dosage: 10 MG, UNK

REACTIONS (3)
  - MACULOPATHY [None]
  - VISION BLURRED [None]
  - VISUAL ACUITY REDUCED [None]
